FAERS Safety Report 10975351 (Version 1)
Quarter: 2015Q1

REPORT INFORMATION
  Report Type: Spontaneous
  Country: US (occurrence: None)
  Receive Date: 20150226
  Receipt Date: 20150226
  Transmission Date: 20150721
  Serious: No
  Sender: FDA-Public Use
  Company Number: TPA2010A04484

PATIENT
  Age: 77 Year
  Sex: Male

DRUGS (6)
  1. COLCHICINE (COLCHICINE) [Concomitant]
     Active Substance: COLCHICINE
  2. PLAVIX [Concomitant]
     Active Substance: CLOPIDOGREL BISULFATE
  3. TOPROL (METOPROLOL SUCCINATE) [Concomitant]
  4. METFORMIN [Concomitant]
     Active Substance: METFORMIN HYDROCHLORIDE
  5. ASPIRIN (ACETYLSALICYLIC ACID) [Concomitant]
     Active Substance: ASPIRIN
  6. ULORIC [Suspect]
     Active Substance: FEBUXOSTAT
     Indication: GOUT
     Dates: start: 2010, end: 2010

REACTIONS (3)
  - Hypotension [None]
  - Anaemia [None]
  - Dyspnoea [None]

NARRATIVE: CASE EVENT DATE: 2010
